FAERS Safety Report 9637016 (Version 1)
Quarter: 2013Q4

REPORT INFORMATION
  Report Type: Spontaneous
  Country: CA (occurrence: CA)
  Receive Date: 20131022
  Receipt Date: 20131022
  Transmission Date: 20140711
  Serious: Yes (Disabling)
  Sender: FDA-Public Use
  Company Number: CA-ROCHE-1288167

PATIENT
  Age: 35 Year
  Sex: Female

DRUGS (26)
  1. RITUXAN [Suspect]
     Indication: PRODUCT USED FOR UNKNOWN INDICATION
     Dosage: 4 MG/ML
     Route: 042
  2. RITUXAN [Suspect]
     Dosage: SOLUTION INTRAVENOUS
     Route: 042
  3. RITUXAN [Suspect]
     Dosage: THERAPY DURATION: 43 DAYS, SOLUTION INTRAVENOUS
     Route: 042
  4. CYCLOPHOSPHAMIDE [Suspect]
     Indication: PRODUCT USED FOR UNKNOWN INDICATION
     Dosage: POWDER FOR SOLUTION INTRAVENOUS AND THERAPY DURATION: 43 DAYS
     Route: 042
  5. DOXORUBICIN HYDROCHLORIDE [Suspect]
     Indication: PRODUCT USED FOR UNKNOWN INDICATION
     Dosage: THERAPY DURATION: 43 DAYS
     Route: 042
  6. PREDNISOLONE [Suspect]
     Indication: PRODUCT USED FOR UNKNOWN INDICATION
     Dosage: THERAPY DURATION: 43 DAYS
     Route: 048
  7. VINCRISTINE SULFATE [Suspect]
     Indication: PRODUCT USED FOR UNKNOWN INDICATION
     Dosage: INJECTION USP, THERAPY DURATION: 43 DAYS
     Route: 042
  8. PREPARATION H CREAM [Concomitant]
  9. ACETAMINOPHEN [Concomitant]
  10. ACETAMINOPHEN/TRAMADOL HYDROCHLORIDE [Concomitant]
  11. BENZYDAMINE [Concomitant]
     Dosage: SOLUTION BUCCAL
     Route: 065
  12. CODEINE [Concomitant]
  13. COLACE [Concomitant]
  14. LIDOCAINE [Concomitant]
  15. MORPHINE SULFATE [Concomitant]
  16. NAPROXEN [Concomitant]
     Route: 065
  17. PANTOPRAZOLE [Concomitant]
  18. PREPARATION H SUPPOSITORIES [Concomitant]
     Route: 065
  19. RANITIDINE [Concomitant]
  20. RESTORALAX [Concomitant]
     Dosage: POWDER FOR SOLUTION ORAL
     Route: 065
  21. SENOKOT [Concomitant]
  22. VALACYCLOVIR [Concomitant]
  23. DROSPIRENONE/ESTRADIOL [Concomitant]
  24. HYDROXYZINE HYDROCHLORIDE [Concomitant]
     Dosage: INJECTION, USP-LIQUID INTRAMUSCULAR
     Route: 065
  25. SHARK OIL [Concomitant]
  26. POLYETHYLENE GLYCOL 3350 [Concomitant]

REACTIONS (3)
  - Condition aggravated [Recovering/Resolving]
  - Stomatitis [Recovering/Resolving]
  - Oral herpes [Recovering/Resolving]
